FAERS Safety Report 5667450-7 (Version None)
Quarter: 2008Q1

REPORT INFORMATION
  Report Type: 
  Country: None (occurrence: None)
  Receive Date: 20080315
  Receipt Date: 20080226
  Transmission Date: 20080703
  Serious: No
  Sender: FDA-Public Use
  Company Number: US-ABBOTT-08P-163-0435097-00

PATIENT
  Sex: Female
  Weight: 83.082 kg

DRUGS (8)
  1. HUMIRA [Suspect]
     Indication: CROHN'S DISEASE
     Route: 058
     Dates: start: 20080121, end: 20080121
  2. HUMIRA [Suspect]
     Route: 058
  3. HUMIRA [Suspect]
     Route: 058
     Dates: end: 20080218
  4. LEVOTHYROXINE SODIUM [Concomitant]
     Indication: HYPOTHYROIDISM
     Route: 048
  5. ESTRATEST H.S. [Concomitant]
     Indication: MENOPAUSE
     Route: 048
  6. SERTRALINE [Concomitant]
     Indication: MENOPAUSE
     Route: 048
  7. BUDESONIDE [Concomitant]
     Indication: CROHN'S DISEASE
     Route: 048
  8. PROPACET 100 [Concomitant]
     Indication: PAIN
     Route: 048

REACTIONS (4)
  - FATIGUE [None]
  - INJECTION SITE ERYTHEMA [None]
  - ORAL HERPES [None]
  - UPPER RESPIRATORY TRACT INFECTION [None]
